FAERS Safety Report 4701786-9 (Version None)
Quarter: 2005Q2

REPORT INFORMATION
  Report Type: 
  Country: None (occurrence: None)
  Receive Date: 20050627
  Receipt Date: 20050614
  Transmission Date: 20051028
  Serious: Yes (Other)
  Sender: FDA-Public Use
  Company Number: 2005073350

PATIENT
  Age: 58 Year
  Sex: Male
  Weight: 90.7194 kg

DRUGS (2)
  1. BEXTRA [Suspect]
     Indication: ARTHRITIS
     Dosage: 20 MG (20 MG 1 IN 1 D) ORAL
     Route: 048
     Dates: start: 20031204, end: 20040101
  2. PRINZIDE [Concomitant]

REACTIONS (11)
  - ABDOMINAL PAIN UPPER [None]
  - CORONARY ARTERY ATHEROSCLEROSIS [None]
  - DERMATITIS ALLERGIC [None]
  - ESSENTIAL HYPERTENSION [None]
  - MALAISE [None]
  - NAUSEA [None]
  - NEOPLASM SKIN [None]
  - NEURITIS [None]
  - RADICULITIS [None]
  - RAYNAUD'S PHENOMENON [None]
  - WEIGHT INCREASED [None]
